FAERS Safety Report 8839749 (Version 1)
Quarter: 2012Q4

REPORT INFORMATION
  Report Type: Spontaneous
  Country: US (occurrence: None)
  Receive Date: 20121011
  Receipt Date: 20121011
  Transmission Date: 20130627
  Serious: No
  Sender: FDA-Public Use
  Company Number: None

PATIENT
  Age: 46 Year
  Sex: Female
  Weight: 67.13 kg

DRUGS (1)
  1. HYDROXYCHLOROQUINE [Suspect]
     Route: 048
     Dates: start: 20121004, end: 20121010

REACTIONS (3)
  - Feeling drunk [None]
  - Dizziness [None]
  - Abnormal behaviour [None]
